FAERS Safety Report 15450287 (Version 1)
Quarter: 2018Q3

REPORT INFORMATION
  Report Type: Spontaneous
  Country: US (occurrence: US)
  Receive Date: 20180927
  Receipt Date: 20180927
  Transmission Date: 20181010
  Serious: Yes (Disabling)
  Sender: FDA-Public Use
  Company Number: None

PATIENT
  Age: 60 Year
  Sex: Female
  Weight: 92 kg

DRUGS (1)
  1. GIAPREZA [Suspect]
     Active Substance: ANGIOTENSIN II
     Indication: SEPSIS
     Dosage: ?          OTHER FREQUENCY:INFUSION;?
     Route: 041
     Dates: start: 20180709, end: 20180710

REACTIONS (3)
  - Cyanosis [None]
  - Disseminated intravascular coagulation [None]
  - Septic shock [None]

NARRATIVE: CASE EVENT DATE: 20180710
